FAERS Safety Report 7444669-6 (Version None)
Quarter: 2011Q2

REPORT INFORMATION
  Report Type: 
  Country: None (occurrence: None)
  Receive Date: 20110429
  Receipt Date: 20110420
  Transmission Date: 20111010
  Serious: Yes (Hospitalization)
  Sender: FDA-Public Use
  Company Number: DE-NOVOPROD-324397

PATIENT
  Sex: Female

DRUGS (4)
  1. METFORMIN HYDROCHLORIDE [Concomitant]
     Indication: DIABETES MELLITUS
     Dosage: 2000 MG, UNK
     Dates: start: 20101101
  2. RAMIPRIL [Concomitant]
     Dosage: 5 MG, QD
  3. ACT                                /00020001/ [Concomitant]
     Dosage: 25 MG, QD
  4. VICTOZA [Suspect]
     Indication: TYPE 2 DIABETES MELLITUS
     Dosage: UNK
     Dates: start: 20101116, end: 20110124

REACTIONS (4)
  - NAUSEA [None]
  - ABDOMINAL PAIN [None]
  - HEPATITIS ACUTE [None]
  - VOMITING [None]
